FAERS Safety Report 21575491 (Version 2)
Quarter: 2022Q4

REPORT INFORMATION
  Report Type: Other
  Country: DE (occurrence: DE)
  Receive Date: 20221110
  Receipt Date: 20221114
  Transmission Date: 20230113
  Serious: No
  Sender: FDA-Public Use
  Company Number: DE-ROCHE-3214015

PATIENT
  Age: 47 Year
  Sex: Female

DRUGS (10)
  1. ALECTINIB [Suspect]
     Active Substance: ALECTINIB
     Indication: Neuroendocrine carcinoma
     Route: 065
  2. CRIZOTINIB [Concomitant]
     Active Substance: CRIZOTINIB
  3. CERITINIB [Concomitant]
     Active Substance: CERITINIB
  4. BRIGATINIB [Concomitant]
     Active Substance: BRIGATINIB
  5. CARBOPLATIN [Concomitant]
     Active Substance: CARBOPLATIN
  6. PEMETREXED [Concomitant]
     Active Substance: PEMETREXED
  7. LORLATINIB [Concomitant]
     Active Substance: LORLATINIB
  8. PACLITAXEL [Concomitant]
     Active Substance: PACLITAXEL
  9. BEVACIZUMAB [Concomitant]
     Active Substance: BEVACIZUMAB
  10. ATEZOLIZUMAB [Concomitant]
     Active Substance: ATEZOLIZUMAB
     Route: 065

REACTIONS (3)
  - Disease progression [Unknown]
  - Drug resistance [Unknown]
  - Drug ineffective [Unknown]
